FAERS Safety Report 5057351-X (Version None)
Quarter: 2006Q3

REPORT INFORMATION
  Report Type: 
  Country: None (occurrence: None)
  Receive Date: 20060721
  Receipt Date: 20050824
  Transmission Date: 20061208
  Serious: Yes (Hospitalization)
  Sender: FDA-Public Use
  Company Number: US-GLAXOSMITHKLINE-A0571664A

PATIENT
  Age: 78 Year
  Sex: Male
  Weight: 91.4 kg

DRUGS (15)
  1. AVANDIA [Suspect]
     Dosage: 8MG PER DAY
     Dates: end: 20050811
  2. CLOPIDOGREL BISULFATE [Concomitant]
     Dosage: 75MG PER DAY
     Route: 048
  3. OMEPRAZOLE [Concomitant]
     Dosage: 20MG PER DAY
     Route: 048
  4. GLYBURIDE [Concomitant]
     Dosage: 2.5MG PER DAY
     Route: 048
  5. ARICEPT [Concomitant]
     Dosage: 5MG PER DAY
     Route: 048
  6. NITRO-BID [Concomitant]
     Dosage: 6.5MG TWICE PER DAY
     Route: 048
  7. BIOTIN [Concomitant]
     Dosage: 1000MG PER DAY
     Route: 048
  8. METAMUCIL [Concomitant]
     Route: 048
  9. IRBESARTAN [Concomitant]
     Dosage: 150MG PER DAY
     Route: 048
  10. ASCORBIC ACID [Concomitant]
     Dosage: 500MG PER DAY
     Route: 048
  11. METFORMIN HYDROCHLORIDE [Concomitant]
     Dosage: 1000MG TWICE PER DAY
     Route: 048
  12. LASIX [Concomitant]
     Dosage: 40MG PER DAY
     Route: 048
  13. PENTOXIFYLLINE [Concomitant]
     Dosage: 400MG THREE TIMES PER DAY
     Route: 048
  14. GEMFIBROZIL [Concomitant]
     Dosage: 600MG TWICE PER DAY
     Route: 048
  15. HYDROCHLOROTHIAZIDE [Concomitant]
     Dosage: 25MG PER DAY
     Route: 048

REACTIONS (4)
  - ASTHENIA [None]
  - CHEST DISCOMFORT [None]
  - DYSPNOEA [None]
  - PLEURAL EFFUSION [None]
